FAERS Safety Report 7809274-8 (Version None)
Quarter: 2011Q4

REPORT INFORMATION
  Report Type: 
  Country: None (occurrence: None)
  Receive Date: 20111006
  Receipt Date: 20110928
  Transmission Date: 20120403
  Serious: Yes (Hospitalization)
  Sender: FDA-Public Use
  Company Number: PHHY2011PL86202

PATIENT
  Sex: Female

DRUGS (9)
  1. OSTEMAX [Concomitant]
     Dosage: UNK
  2. BISOPROLOL FUMARATE [Concomitant]
     Dosage: UNK
  3. DICLAC DUO [Suspect]
     Indication: BACK PAIN
     Dosage: 150 MG, UNK
     Route: 048
     Dates: start: 20110829, end: 20110905
  4. FUROSEMIDE [Concomitant]
     Dosage: UNK
  5. DIGOXIN [Concomitant]
     Dosage: UNK
  6. KETOPROFEN [Suspect]
     Indication: BACK PAIN
     Dosage: 300 MG, UNK
     Route: 048
     Dates: start: 20110829, end: 20110905
  7. KALIPOZ [Concomitant]
     Dosage: UNK
  8. RANIGAST [Concomitant]
     Dosage: UNK
  9. ACARD [Concomitant]
     Dosage: UNK

REACTIONS (3)
  - CIRCULATORY COLLAPSE [None]
  - DYSPNOEA [None]
  - OEDEMA PERIPHERAL [None]
